FAERS Safety Report 13487470 (Version 1)
Quarter: 2017Q2

REPORT INFORMATION
  Report Type: Spontaneous
  Country: TW (occurrence: TW)
  Receive Date: 20170426
  Receipt Date: 20170426
  Transmission Date: 20170830
  Serious: Yes (Other)
  Sender: FDA-Public Use
  Company Number: TW-BAUSCH-BL-2017-010793

PATIENT
  Sex: Female

DRUGS (1)
  1. VISUDYNE [Suspect]
     Active Substance: VERTEPORFIN
     Indication: POLYPOIDAL CHOROIDAL VASCULOPATHY
     Route: 042
     Dates: start: 20170115, end: 20170115

REACTIONS (1)
  - Eye haemorrhage [Not Recovered/Not Resolved]

NARRATIVE: CASE EVENT DATE: 20170414
